FAERS Safety Report 7239563-X (Version None)
Quarter: 2011Q1

REPORT INFORMATION
  Report Type: 
  Country: None (occurrence: None)
  Receive Date: 20110121
  Receipt Date: 20110114
  Transmission Date: 20110831
  Serious: No
  Sender: FDA-Public Use
  Company Number: US-B.I. PHARMACEUTICALS,INC./RIDGEFIELD-2011-BP-01307BP

PATIENT
  Sex: Male

DRUGS (14)
  1. WELLBUTRIN [Concomitant]
     Indication: DEPRESSION
     Dates: end: 20101201
  2. MULTIVITAMIN [Concomitant]
     Indication: PROPHYLAXIS
  3. RANITIDINE [Concomitant]
     Indication: HYPERCHLORHYDRIA
  4. DIGOXIN [Concomitant]
     Indication: HYPERTENSION
  5. OMEPRAZOLE [Concomitant]
     Indication: HYPERCHLORHYDRIA
  6. BACLOFEN [Concomitant]
     Indication: MUSCLE DISORDER
  7. MSM [Concomitant]
     Indication: PROPHYLAXIS
  8. PRADAXA [Suspect]
     Indication: HEART RATE IRREGULAR
     Dosage: 300 MG
     Route: 048
     Dates: start: 20101201
  9. CARVEDILOL [Concomitant]
     Indication: HYPERTENSION
  10. SIMVASTATIN [Concomitant]
     Indication: BLOOD CHOLESTEROL INCREASED
  11. COZAAR [Concomitant]
     Indication: BLOOD CHOLESTEROL INCREASED
  12. CALCIUM [Concomitant]
     Indication: PROPHYLAXIS
  13. ASA [Concomitant]
     Indication: PROPHYLAXIS
  14. GLUCOSAMINE CHONDROITIN [Concomitant]
     Indication: PROPHYLAXIS

REACTIONS (2)
  - DIZZINESS [None]
  - NASOPHARYNGITIS [None]
